APPROVED DRUG PRODUCT: TYVASO
Active Ingredient: TREPROSTINIL
Strength: 0.6MG/ML
Dosage Form/Route: SOLUTION;INHALATION
Application: N022387 | Product #001
Applicant: UNITED THERAPEUTICS CORP
Approved: Jul 30, 2009 | RLD: Yes | RS: Yes | Type: RX

PATENTS:
Patent 10376525 | Expires: May 14, 2027
Patent 11826327 | Expires: Feb 3, 2042
Patent 9358240 | Expires: May 5, 2028
Patent 9593066 | Expires: Dec 15, 2028
Patent 11723887 | Expires: Dec 15, 2028
Patent 9339507 | Expires: Mar 10, 2028